FAERS Safety Report 11051687 (Version 1)
Quarter: 2015Q2

REPORT INFORMATION
  Report Type: Spontaneous
  Country: US (occurrence: None)
  Receive Date: 20150420
  Receipt Date: 20150420
  Transmission Date: 20150821
  Serious: Yes (Other)
  Sender: FDA-Public Use
  Company Number: None

PATIENT
  Age: 48 Year
  Sex: Female
  Weight: 99.79 kg

DRUGS (6)
  1. OSTEO BIFLEX [Concomitant]
  2. FISH OIL [Concomitant]
     Active Substance: FISH OIL
  3. VIT D +CA [Concomitant]
  4. VIT B COMPLEX [Concomitant]
  5. CELECOXIB 200 MG TEVA USA [Suspect]
     Active Substance: CELECOXIB
     Indication: OSTEOARTHRITIS
     Route: 048
  6. ZOLOFT [Concomitant]
     Active Substance: SERTRALINE HYDROCHLORIDE

REACTIONS (2)
  - Urticaria [None]
  - Product substitution issue [None]

NARRATIVE: CASE EVENT DATE: 20150115
